FAERS Safety Report 12990691 (Version 1)
Quarter: 2016Q4

REPORT INFORMATION
  Report Type: Spontaneous
  Country: GB (occurrence: GB)
  Receive Date: 20161201
  Receipt Date: 20161201
  Transmission Date: 20170207
  Serious: Yes (Disabling, Other)
  Sender: FDA-Public Use
  Company Number: GB-ASTRAZENECA-2016SF25239

PATIENT
  Age: 61 Year
  Sex: Male
  Weight: 129 kg

DRUGS (6)
  1. DAPAGLIFLOZIN [Suspect]
     Active Substance: DAPAGLIFLOZIN
     Dosage: 5.0MG UNKNOWN
     Route: 048
     Dates: start: 20161019, end: 20161109
  2. FLUOXETINE [Concomitant]
     Active Substance: FLUOXETINE HYDROCHLORIDE
     Indication: DEPRESSION
     Dosage: 20.0MG UNKNOWN
     Route: 048
     Dates: start: 20130701
  3. AMITRIPTYLINE [Concomitant]
     Active Substance: AMITRIPTYLINE
     Indication: BACK PAIN
     Dosage: 10.0MG UNKNOWN
     Route: 048
     Dates: start: 20130701
  4. METFORMIN [Concomitant]
     Active Substance: METFORMIN HYDROCHLORIDE
     Indication: DIABETES MELLITUS
     Route: 048
     Dates: start: 20160602
  5. SHORTEC [Concomitant]
     Indication: PAIN
     Route: 048
     Dates: start: 20160715
  6. LONGTEC [Concomitant]
     Active Substance: OXYCODONE HYDROCHLORIDE
     Indication: PAIN
     Route: 048
     Dates: start: 20161004

REACTIONS (5)
  - Glomerular filtration rate decreased [Not Recovered/Not Resolved]
  - Dyspnoea [Not Recovered/Not Resolved]
  - Blood creatinine increased [Not Recovered/Not Resolved]
  - Feeling hot [Not Recovered/Not Resolved]
  - Hyperhidrosis [Not Recovered/Not Resolved]
